FAERS Safety Report 16656321 (Version 1)
Quarter: 2019Q3

REPORT INFORMATION
  Report Type: Spontaneous
  Country: US (occurrence: US)
  Receive Date: 20190801
  Receipt Date: 20190801
  Transmission Date: 20191004
  Serious: No
  Sender: FDA-Public Use
  Company Number: US-PACIRA-201700090

PATIENT
  Sex: Female

DRUGS (3)
  1. SALINE [Suspect]
     Active Substance: SODIUM CHLORIDE
     Indication: POSTOPERATIVE ANALGESIA
     Dosage: 150 ML
     Route: 050
     Dates: start: 20170613, end: 20170613
  2. MARCAINE [Suspect]
     Active Substance: BUPIVACAINE HYDROCHLORIDE
     Indication: POSTOPERATIVE ANALGESIA
     Dosage: 30 ML, 0.5%
     Route: 050
     Dates: start: 20170613, end: 20170613
  3. EXPAREL [Suspect]
     Active Substance: BUPIVACAINE
     Indication: POSTOPERATIVE ANALGESIA
     Dosage: 266 MG, SINGLE 20 ML VIAL, FREQUENCY : SINGLE
     Route: 050
     Dates: start: 20170613, end: 20170613

REACTIONS (2)
  - Blood pressure decreased [Unknown]
  - Labelled drug-drug interaction medication error [Unknown]

NARRATIVE: CASE EVENT DATE: 20170613
